FAERS Safety Report 8822238 (Version 1)
Quarter: 2012Q4

REPORT INFORMATION
  Report Type: 
  Country: US (occurrence: US)
  Receive Date: 20121003
  Receipt Date: 20121003
  Transmission Date: 20130627
  Serious: No
  Sender: FDA-Public Use
  Company Number: US-PFIZER INC-2012241172

PATIENT
  Age: 75 Year
  Sex: Female
  Weight: 90.7 kg

DRUGS (5)
  1. COLESTID [Suspect]
     Indication: IRRITABLE BOWEL SYNDROME
     Dosage: UNK
     Route: 048
     Dates: end: 2012
  2. COLESTID [Suspect]
     Indication: IRRITABLE BOWEL SYNDROME
     Dosage: UNK
     Route: 048
     Dates: start: 201206, end: 201208
  3. LYRICA [Concomitant]
     Indication: NEUROPATHY PERIPHERAL
     Dosage: 100 mg, 2x/day
     Route: 048
  4. LYRICA [Concomitant]
     Dosage: 100 mg, 1x/day
     Route: 048
  5. CELEBREX [Concomitant]
     Dosage: UNK

REACTIONS (2)
  - Off label use [Unknown]
  - Therapeutic response unexpected [Unknown]
